FAERS Safety Report 9696770 (Version 2)
Quarter: 2013Q4

REPORT INFORMATION
  Report Type: Spontaneous
  Country: US (occurrence: US)
  Receive Date: 20131119
  Receipt Date: 20131119
  Transmission Date: 20140711
  Serious: No
  Sender: FDA-Public Use
  Company Number: US-GILEAD-2007-0014330

PATIENT
  Age: 47 Year
  Sex: Female

DRUGS (3)
  1. LETAIRIS [Suspect]
     Route: 048
     Dates: start: 20071002, end: 20071022
  2. LASIX [Concomitant]
     Route: 048
  3. METOLAZONE [Concomitant]
     Dosage: EVERY OTHER DAY

REACTIONS (1)
  - Oedema [Recovered/Resolved]
